FAERS Safety Report 25479960 (Version 1)
Quarter: 2025Q2

REPORT INFORMATION
  Report Type: Report from Study
  Country: CA (occurrence: CA)
  Receive Date: 20250625
  Receipt Date: 20250625
  Transmission Date: 20250717
  Serious: Yes (Disabling, Other)
  Sender: NOVARTIS
  Company Number: CA-002147023-NVSC2025CA074116

PATIENT
  Age: 34 Year

DRUGS (2)
  1. COSENTYX [Suspect]
     Active Substance: SECUKINUMAB
     Indication: Psoriatic arthropathy
     Dosage: 150 MG, QMO
     Route: 058
     Dates: start: 20190905
  2. COSENTYX [Suspect]
     Active Substance: SECUKINUMAB
     Route: 065
     Dates: start: 20250520

REACTIONS (8)
  - Pneumonia [Not Recovered/Not Resolved]
  - Illness [Not Recovered/Not Resolved]
  - Sputum discoloured [Unknown]
  - Rhinorrhoea [Unknown]
  - Nasal congestion [Unknown]
  - Oropharyngeal pain [Unknown]
  - Ear pain [Unknown]
  - Pain [Unknown]

NARRATIVE: CASE EVENT DATE: 20250429
